FAERS Safety Report 19642807 (Version 1)
Quarter: 2021Q3

REPORT INFORMATION
  Report Type: Spontaneous
  Country: US (occurrence: US)
  Receive Date: 20210730
  Receipt Date: 20210730
  Transmission Date: 20211014
  Serious: Yes (Other)
  Sender: FDA-Public Use
  Company Number: US-PFIZER INC-202100936539

PATIENT
  Sex: Female

DRUGS (1)
  1. GABAPENTIN. [Suspect]
     Active Substance: GABAPENTIN
     Indication: NEURALGIA
     Dosage: 1200 MG

REACTIONS (11)
  - Peripheral swelling [Unknown]
  - Muscular weakness [Unknown]
  - Drug hypersensitivity [Unknown]
  - Drug dependence [Unknown]
  - Gait disturbance [Unknown]
  - Decreased appetite [Unknown]
  - Headache [Unknown]
  - Malaise [Unknown]
  - Depressed mood [Unknown]
  - Pain [Unknown]
  - Discomfort [Unknown]
